FAERS Safety Report 20219067 (Version 2)
Quarter: 2022Q1

REPORT INFORMATION
  Report Type: Report from Study
  Country: BR (occurrence: BR)
  Receive Date: 20211222
  Receipt Date: 20220104
  Transmission Date: 20220424
  Serious: Yes (Other)
  Sender: FDA-Public Use
  Company Number: BR-TAKEDA-2021TUS080883

PATIENT
  Weight: 64 kg

DRUGS (1)
  1. MOBOCERTINIB [Suspect]
     Active Substance: MOBOCERTINIB
     Indication: Lung adenocarcinoma
     Dosage: UNK, QD
     Route: 048
     Dates: start: 20210827, end: 20211116

REACTIONS (5)
  - Lung neoplasm malignant [Unknown]
  - Fatigue [Unknown]
  - Diarrhoea [Recovered/Resolved]
  - Nausea [Recovered/Resolved]
  - Drug intolerance [Unknown]
